FAERS Safety Report 8368078-0 (Version None)
Quarter: 2012Q2

REPORT INFORMATION
  Report Type: 
  Country: None (occurrence: None)
  Receive Date: 20120517
  Receipt Date: 20120514
  Transmission Date: 20120825
  Serious: Yes (Hospitalization)
  Sender: FDA-Public Use
  Company Number: US-PFIZER INC-2012118009

PATIENT
  Age: 54 Year
  Sex: Male

DRUGS (1)
  1. MORPHINE SULFATE [Suspect]
     Dosage: UNK

REACTIONS (6)
  - MUSCLE RIGIDITY [None]
  - CONFUSIONAL STATE [None]
  - CEREBRAL ISCHAEMIA [None]
  - LEUKOENCEPHALOPATHY [None]
  - LOCKED-IN SYNDROME [None]
  - OVERDOSE [None]
